FAERS Safety Report 12487155 (Version 5)
Quarter: 2017Q2

REPORT INFORMATION
  Report Type: Report from Study
  Country: KR (occurrence: KR)
  Receive Date: 20160622
  Receipt Date: 20170529
  Transmission Date: 20170830
  Serious: Yes (Hospitalization, Other)
  Sender: FDA-Public Use
  Company Number: KR-ASTRAZENECA-2016SE64932

PATIENT
  Age: 25245 Day
  Sex: Female

DRUGS (11)
  1. TAGRISSO [Suspect]
     Active Substance: OSIMERTINIB
     Indication: NON-SMALL CELL LUNG CANCER
     Route: 048
     Dates: start: 20160610, end: 20160610
  2. COUGH S SYRUP [Concomitant]
     Indication: PNEUMONIA
     Route: 048
     Dates: start: 20160528, end: 20160605
  3. AZD6094 [Suspect]
     Active Substance: SAVOLITINIB
     Indication: NON-SMALL CELL LUNG CANCER
     Route: 048
     Dates: start: 20160518, end: 20160527
  4. SMECTA [Concomitant]
     Active Substance: MONTMORILLONITE
     Indication: DIARRHOEA
     Dosage: 20.0ML ONCE/SINGLE ADMINISTRATION
     Route: 048
     Dates: start: 20160609, end: 20160609
  5. MUCOSTA [Concomitant]
     Active Substance: REBAMIPIDE
     Indication: PNEUMONIA
     Route: 048
     Dates: start: 20160528, end: 20160610
  6. COFREL [Concomitant]
     Indication: PNEUMONIA
  7. MINOCIN [Concomitant]
     Active Substance: MINOCYCLINE HYDROCHLORIDE
     Indication: RASH
     Route: 048
     Dates: start: 20160531, end: 20160606
  8. SOLONDO [Concomitant]
     Active Substance: PREDNISOLONE
     Indication: PNEUMONIA
     Route: 048
     Dates: start: 20160605, end: 20160609
  9. PENIRAMIN [Concomitant]
     Indication: RASH
     Route: 042
     Dates: start: 20160531, end: 20160606
  10. TAGRISSO [Suspect]
     Active Substance: OSIMERTINIB
     Indication: NON-SMALL CELL LUNG CANCER
     Route: 048
     Dates: start: 20160518, end: 20160527
  11. AVELOX [Concomitant]
     Active Substance: MOXIFLOXACIN HYDROCHLORIDE
     Indication: PNEUMONIA
     Route: 042
     Dates: start: 20160530, end: 20160605

REACTIONS (1)
  - Anaphylactic reaction [Recovered/Resolved]

NARRATIVE: CASE EVENT DATE: 20160610
